FAERS Safety Report 6806380-1 (Version None)
Quarter: 2010Q2

REPORT INFORMATION
  Report Type: 
  Country: None (occurrence: None)
  Receive Date: 20100629
  Receipt Date: 20080220
  Transmission Date: 20101027
  Serious: Yes (Other)
  Sender: FDA-Public Use
  Company Number: US-PFIZER INC-2008016435

PATIENT
  Sex: Female
  Weight: 75.3 kg

DRUGS (9)
  1. ZYVOX [Suspect]
     Indication: ENTEROCOCCAL INFECTION
     Dates: start: 20080115, end: 20080215
  2. TYLENOL [Concomitant]
  3. ALLOPURINOL [Concomitant]
  4. NEXIUM [Concomitant]
  5. HYDROXYCHLOROQUINE [Concomitant]
  6. SYNTHROID [Concomitant]
  7. LEVOTHYROXINE SODIUM [Concomitant]
  8. ZOLOFT [Concomitant]
  9. ZOCOR [Concomitant]

REACTIONS (1)
  - PLATELET COUNT DECREASED [None]
